FAERS Safety Report 9550151 (Version 1)
Quarter: 2013Q3

REPORT INFORMATION
  Report Type: Spontaneous
  Country: RU (occurrence: RU)
  Receive Date: 20130924
  Receipt Date: 20130924
  Transmission Date: 20140515
  Serious: Yes (Hospitalization)
  Sender: FDA-Public Use
  Company Number: RU-BIOMARINAP-RU-2013-101557

PATIENT
  Sex: Male

DRUGS (2)
  1. ALDURAZYME [Suspect]
     Indication: MUCOPOLYSACCHARIDOSIS I
     Dosage: UNK
     Route: 042
     Dates: start: 2011
  2. ALDURAZYME [Suspect]
     Dosage: UNK
     Route: 042
     Dates: start: 201202

REACTIONS (3)
  - Pneumonia [Not Recovered/Not Resolved]
  - Renal impairment [Not Recovered/Not Resolved]
  - Aphthous stomatitis [Not Recovered/Not Resolved]
